FAERS Safety Report 25463407 (Version 1)
Quarter: 2025Q2

REPORT INFORMATION
  Report Type: Spontaneous
  Country: US (occurrence: US)
  Receive Date: 20250620
  Receipt Date: 20250620
  Transmission Date: 20250717
  Serious: No
  Sender: INCYTE
  Company Number: US-EVENT-003153

PATIENT
  Age: 77 Year

DRUGS (1)
  1. OPZELURA [Suspect]
     Active Substance: RUXOLITINIB PHOSPHATE
     Indication: Product used for unknown indication
     Dosage: 1.5 PERCENT, BID (APPLY TO AFFECTED AREA(S) TWICE DAILY AS NEEDED. SAFE TO USE ANYWHERE ON BODY)
     Route: 065

REACTIONS (1)
  - Hypersensitivity [Unknown]
